FAERS Safety Report 9206271 (Version 1)
Quarter: 2013Q2

REPORT INFORMATION
  Report Type: Spontaneous
  Country: US (occurrence: None)
  Receive Date: 20130401
  Receipt Date: 20130401
  Transmission Date: 20140414
  Serious: Yes (Other)
  Sender: FDA-Public Use
  Company Number: B0878978A

PATIENT
  Age: 61 Year
  Sex: Male

DRUGS (1)
  1. ORLISTAT [Suspect]
     Indication: PRODUCT USED FOR UNKNOWN INDICATION

REACTIONS (7)
  - Crystal nephropathy [None]
  - Renal tubular necrosis [None]
  - Nausea [None]
  - Vomiting [None]
  - Blood creatinine increased [None]
  - Blood potassium increased [None]
  - Hyperoxaluria [None]
